FAERS Safety Report 8810642 (Version 1)
Quarter: 2012Q4

REPORT INFORMATION
  Report Type: Report from Study
  Country: FR (occurrence: FR)
  Receive Date: 20120927
  Receipt Date: 20120927
  Transmission Date: 20130627
  Serious: Yes (Hospitalization)
  Sender: FDA-Public Use
  Company Number: FR-009507513-1209FRA008267

PATIENT
  Age: 40 Year
  Sex: Male
  Weight: 93 kg

DRUGS (7)
  1. BOCEPREVIR [Suspect]
     Indication: HEPATITIS C
     Dosage: UNK
     Dates: start: 20120611
  2. VIRAFERONPEG [Suspect]
     Indication: HEPATITIS C
     Dosage: UNK
     Dates: start: 20120515, end: 20120910
  3. REBETOL [Suspect]
     Indication: HEPATITIS C
     Dosage: UNK
     Dates: start: 20120515, end: 20120910
  4. PROPRANOLOL HYDROCHLORIDE [Concomitant]
     Indication: PRODUCT USED FOR UNKNOWN INDICATION
     Dosage: 160 mg, qd
     Dates: start: 20101005
  5. ESOMEPRAZOLE [Concomitant]
     Indication: PRODUCT USED FOR UNKNOWN INDICATION
     Dosage: 40 mg, qd
     Dates: start: 20110909
  6. ACETAMINOPHEN [Concomitant]
     Indication: PRODUCT USED FOR UNKNOWN INDICATION
     Dosage: 100 mg, prn
     Dates: start: 20120618
  7. EPOETIN BETA [Concomitant]
     Indication: ANAEMIA
     Dosage: 30000 IU, qw
     Dates: start: 20120716, end: 20120910

REACTIONS (1)
  - Depression [Not Recovered/Not Resolved]
